FAERS Safety Report 5427113-X (Version None)
Quarter: 2007Q3

REPORT INFORMATION
  Report Type: 
  Country: None (occurrence: None)
  Receive Date: 20070823
  Receipt Date: 20070823
  Transmission Date: 20080115
  Serious: Yes (Hospitalization)
  Sender: FDA-Public Use
  Company Number: None

PATIENT
  Age: 21 Year
  Sex: Male
  Weight: 51.7 kg

DRUGS (8)
  1. MYCOPHENOLATE MOFETIL [Suspect]
     Indication: IMMUNOSUPPRESSION
     Dosage: 500MG PO Q12HRS
     Route: 048
     Dates: start: 20050907, end: 20070130
  2. FOLIC ACID [Concomitant]
  3. CALCIUM [Concomitant]
  4. LANSOPRAZOLE [Concomitant]
  5. NIFEDIPINE [Concomitant]
  6. TACROLIMUS [Concomitant]
  7. URSODIOL [Concomitant]
  8. MESALAMINE [Concomitant]

REACTIONS (1)
  - COLITIS ULCERATIVE [None]
